FAERS Safety Report 7196230-9 (Version None)
Quarter: 2010Q4

REPORT INFORMATION
  Report Type: 
  Country: None (occurrence: None)
  Receive Date: 20101223
  Receipt Date: 20101019
  Transmission Date: 20110411
  Serious: No
  Sender: FDA-Public Use
  Company Number: US-AMGEN-USASP2010001417

PATIENT
  Sex: Female

DRUGS (1)
  1. ENBREL [Suspect]
     Indication: RHEUMATOID ARTHRITIS
     Dosage: 50 MG, QWK
     Dates: start: 20080301, end: 20101010

REACTIONS (4)
  - NASAL CONGESTION [None]
  - OROPHARYNGEAL PAIN [None]
  - PYREXIA [None]
  - SINUSITIS [None]
